FAERS Safety Report 6395006-X (Version None)
Quarter: 2009Q4

REPORT INFORMATION
  Report Type: 
  Country: None (occurrence: None)
  Receive Date: 20091009
  Receipt Date: 20091002
  Transmission Date: 20100525
  Serious: Yes (Hospitalization)
  Sender: FDA-Public Use
  Company Number: IE-ASTRAZENECA-2009SE13650

PATIENT
  Age: 859 Month
  Sex: Male

DRUGS (4)
  1. CRESTOR [Suspect]
     Indication: BLOOD CHOLESTEROL INCREASED
     Route: 048
     Dates: start: 20090312, end: 20090512
  2. CARDICOR [Concomitant]
  3. WARFARIN [Concomitant]
  4. RAMIPRIL [Concomitant]

REACTIONS (5)
  - BLOOD CREATINE PHOSPHOKINASE [None]
  - C-REACTIVE PROTEIN INCREASED [None]
  - MUSCLE ATROPHY [None]
  - MYALGIA [None]
  - WEIGHT DECREASED [None]
